FAERS Safety Report 5357043-3 (Version None)
Quarter: 2007Q2

REPORT INFORMATION
  Report Type: 
  Country: None (occurrence: None)
  Receive Date: 20070612
  Receipt Date: 20070612
  Transmission Date: 20071010
  Serious: No
  Sender: FDA-Public Use
  Company Number: None

PATIENT
  Sex: Female
  Weight: 56.246 kg

DRUGS (1)
  1. LEVAQUIN [Suspect]
     Indication: TRACHEOBRONCHITIS
     Dosage: 500 MG ONE TAB DAILY P.O.
     Route: 048
     Dates: start: 20070601

REACTIONS (2)
  - BLOOD PRESSURE INCREASED [None]
  - TACHYCARDIA [None]
